FAERS Safety Report 8458076-0 (Version None)
Quarter: 2012Q2

REPORT INFORMATION
  Report Type: 
  Country: None (occurrence: None)
  Receive Date: 20120622
  Receipt Date: 20120614
  Transmission Date: 20120825
  Serious: Yes (Hospitalization, Other)
  Sender: FDA-Public Use
  Company Number: JP-JNJFOC-20120515712

PATIENT
  Age: 81 Year
  Sex: Female

DRUGS (7)
  1. PRAVASTATIN [Concomitant]
     Indication: HYPERLIPIDAEMIA
     Route: 048
  2. LANSOPRAZOLE [Concomitant]
     Indication: GASTROOESOPHAGEAL REFLUX DISEASE
     Route: 048
  3. GALANTAMINE HYDROBROMIDE [Suspect]
     Indication: DEMENTIA
     Route: 048
     Dates: start: 20120228, end: 20120326
  4. GALANTAMINE HYDROBROMIDE [Suspect]
     Route: 048
     Dates: start: 20120327, end: 20120514
  5. PERSANTINE [Concomitant]
     Route: 048
  6. NICARDIPINE HCL [Concomitant]
     Indication: HYPERTENSION
     Route: 048
  7. LOXONIN [Concomitant]
     Route: 062

REACTIONS (5)
  - GASTROENTERITIS VIRAL [None]
  - LOSS OF CONSCIOUSNESS [None]
  - URINARY TRACT INFECTION [None]
  - BLOOD CALCIUM INCREASED [None]
  - BRADYCARDIA [None]
